FAERS Safety Report 19435969 (Version 1)
Quarter: 2021Q2

REPORT INFORMATION
  Report Type: Spontaneous
  Country: IN (occurrence: IN)
  Receive Date: 20210618
  Receipt Date: 20210618
  Transmission Date: 20210717
  Serious: Yes (Life-Threatening, Hospitalization, Other)
  Sender: FDA-Public Use
  Company Number: IN-ACCORD-228489

PATIENT
  Age: 26 Year
  Sex: Female

DRUGS (4)
  1. CLOZAPINE. [Suspect]
     Active Substance: CLOZAPINE
     Indication: SCHIZOPHRENIA
     Route: 048
  2. ATROPINE. [Concomitant]
     Active Substance: ATROPINE
     Dosage: DROPS 1 %
     Route: 060
  3. PHENYTOIN. [Concomitant]
     Active Substance: PHENYTOIN
     Route: 048
  4. IMIPRAMINE [Concomitant]
     Active Substance: IMIPRAMINE
     Route: 048

REACTIONS (2)
  - Agranulocytosis [Recovered/Resolved]
  - Staphylococcal infection [Recovered/Resolved]
